FAERS Safety Report 8521152-8 (Version None)
Quarter: 2012Q3

REPORT INFORMATION
  Report Type: 
  Country: None (occurrence: None)
  Receive Date: 20120719
  Receipt Date: 20120716
  Transmission Date: 20120928
  Serious: Yes (Hospitalization)
  Sender: FDA-Public Use
  Company Number: IL-ELI_LILLY_AND_COMPANY-IL201207005012

PATIENT
  Sex: Female
  Weight: 58 kg

DRUGS (3)
  1. CALCIUM [Concomitant]
  2. NORMITEN [Concomitant]
  3. FORTEO [Suspect]
     Indication: OSTEOPOROSIS
     Dosage: 20 UG, QD
     Route: 058
     Dates: start: 20111011, end: 20120707

REACTIONS (1)
  - SMALL INTESTINAL OBSTRUCTION [None]
